FAERS Safety Report 9324560 (Version 3)
Quarter: 2014Q2

REPORT INFORMATION
  Report Type: Spontaneous
  Country: US (occurrence: US)
  Receive Date: 20130603
  Receipt Date: 20140408
  Transmission Date: 20141212
  Serious: Yes (Hospitalization)
  Sender: FDA-Public Use
  Company Number: US-B.I. PHARMACEUTICALS,INC./RIDGEFIELD-2013-BI-15155BP

PATIENT
  Age: 74 Year
  Sex: Male
  Weight: 111.13 kg

DRUGS (20)
  1. PRADAXA [Suspect]
     Indication: ATRIAL FIBRILLATION
     Dosage: 300 MG
     Route: 048
     Dates: start: 201107, end: 2013
  2. ZOSTAVAX [Concomitant]
     Route: 065
  3. HYDROCODONE-CHLORPHENIRAM [Concomitant]
     Route: 065
  4. DIGOXIN [Concomitant]
     Dosage: 125 MCG
     Route: 048
  5. LEVOTHYROXINE [Concomitant]
     Indication: HYPOTHYROIDISM
     Dosage: 175 MCG
     Route: 048
  6. TEMAZEPAM [Concomitant]
     Dosage: 15 MG
     Route: 048
  7. PHENERGAN [Concomitant]
     Route: 048
  8. SIMVASTATIN [Concomitant]
     Route: 065
  9. NISOLDIPINE [Concomitant]
     Route: 048
  10. ASPIRIN [Concomitant]
     Indication: ANTICOAGULANT THERAPY
     Dosage: 81 MG
     Route: 048
  11. COMBIGAN EYE DROPS [Concomitant]
     Indication: GLAUCOMA
     Route: 031
  12. COLACE [Concomitant]
     Dosage: 100 MG
     Route: 048
  13. LASIX [Concomitant]
     Route: 048
  14. OMEPRAZOLE [Concomitant]
     Route: 048
  15. TAMSULOSIN [Concomitant]
     Route: 048
  16. CELEXA [Concomitant]
     Route: 065
  17. MIRALAX [Concomitant]
     Route: 065
  18. POTASSIUM CHLORIDE [Concomitant]
     Route: 048
  19. LORTAB [Concomitant]
     Indication: PAIN
     Route: 048
  20. CENTRUM CARDIO [Concomitant]
     Route: 048

REACTIONS (2)
  - Gastrointestinal haemorrhage [Unknown]
  - Haemorrhagic anaemia [Unknown]
